FAERS Safety Report 5646959-6 (Version None)
Quarter: 2008Q1

REPORT INFORMATION
  Report Type: 
  Country: None (occurrence: None)
  Receive Date: 20080303
  Receipt Date: 20080222
  Transmission Date: 20080703
  Serious: Yes (Other)
  Sender: FDA-Public Use
  Company Number: A0700807A

PATIENT
  Age: 38 Year
  Sex: Female
  Weight: 67.3 kg

DRUGS (1)
  1. PAXIL [Suspect]
     Indication: DEPRESSION
     Route: 065
     Dates: start: 20070301

REACTIONS (16)
  - ABDOMINAL DISCOMFORT [None]
  - AGORAPHOBIA [None]
  - ANTISOCIAL PERSONALITY DISORDER [None]
  - APATHY [None]
  - COMPUTERISED TOMOGRAM ABNORMAL [None]
  - DEPRESSION [None]
  - HAEMOGLOBIN DECREASED [None]
  - ILL-DEFINED DISORDER [None]
  - LOSS OF LIBIDO [None]
  - OPERATIVE HAEMORRHAGE [None]
  - PARAESTHESIA [None]
  - SOMNOLENCE [None]
  - UPPER RESPIRATORY TRACT INFECTION [None]
  - WEIGHT INCREASED [None]
  - WITHDRAWAL SYNDROME [None]
  - X-RAY ABNORMAL [None]
